FAERS Safety Report 9284696 (Version 1)
Quarter: 2013Q2

REPORT INFORMATION
  Report Type: Spontaneous
  Country: US (occurrence: US)
  Receive Date: 20130513
  Receipt Date: 20130513
  Transmission Date: 20140414
  Serious: No
  Sender: FDA-Public Use
  Company Number: US-009507513-1305USA005370

PATIENT
  Age: 55 Year
  Sex: Female

DRUGS (2)
  1. ASMANEX TWISTHALER [Suspect]
     Indication: SARCOIDOSIS
     Dosage: 1 PUFF TWICE A DAY, (EA) 220
     Route: 055
     Dates: start: 2010
  2. MEDROL [Concomitant]

REACTIONS (3)
  - Headache [Recovered/Resolved]
  - Poor quality drug administered [Unknown]
  - Product quality issue [Unknown]
